FAERS Safety Report 17547436 (Version 17)
Quarter: 2021Q2

REPORT INFORMATION
  Report Type: Report from Study
  Country: FR (occurrence: FR)
  Receive Date: 20200316
  Receipt Date: 20210409
  Transmission Date: 20210716
  Serious: Yes (Death, Hospitalization, Other)
  Sender: FDA-Public Use
  Company Number: FR-EISAI MEDICAL RESEARCH-EC-2020-071806

PATIENT
  Age: 71 Year
  Sex: Male
  Weight: 74 kg

DRUGS (19)
  1. LENVATINIB [Suspect]
     Active Substance: LENVATINIB
     Indication: HEPATOCELLULAR CARCINOMA
     Dosage: (BODY WEIGHT (BW) MORE OF EQUAL THAN 60 KG)
     Route: 048
     Dates: start: 20200212, end: 20200312
  2. EZETROL [Concomitant]
     Active Substance: EZETIMIBE
     Dates: start: 201901
  3. PLACEBO [Suspect]
     Active Substance: UNSPECIFIED INGREDIENT
     Route: 041
     Dates: start: 20200324, end: 20200526
  4. PLACEBO [Suspect]
     Active Substance: UNSPECIFIED INGREDIENT
     Route: 041
     Dates: start: 20200616, end: 20200616
  5. MOPRAL [Concomitant]
     Active Substance: OMEPRAZOLE
     Dates: start: 20200303
  6. ZANIDIP [Concomitant]
     Active Substance: LERCANIDIPINE HYDROCHLORIDE
     Dates: start: 201901
  7. PLACEBO [Suspect]
     Active Substance: UNSPECIFIED INGREDIENT
     Indication: HEPATOCELLULAR CARCINOMA
     Route: 041
     Dates: start: 20200212, end: 20200212
  8. KARDEGIC [Concomitant]
     Active Substance: ASPIRIN DL-LYSINE
     Dates: start: 201901
  9. METFORMIN [Concomitant]
     Active Substance: METFORMIN HYDROCHLORIDE
     Dates: start: 201901, end: 20200625
  10. MOPRAL [Concomitant]
     Active Substance: OMEPRAZOLE
     Dates: start: 201601
  11. ADENURIC [Concomitant]
     Active Substance: FEBUXOSTAT
     Dates: start: 201901
  12. CODOLIPRANE [Concomitant]
     Active Substance: ACETAMINOPHEN\CODEINE PHOSPHATE
     Dates: start: 201901
  13. NEURONTIN [Concomitant]
     Active Substance: GABAPENTIN
     Dates: start: 20200303
  14. XANAX [Concomitant]
     Active Substance: ALPRAZOLAM
     Dates: start: 201901
  15. ADENURIC [Concomitant]
     Active Substance: FEBUXOSTAT
     Dates: start: 20200303
  16. PLACEBO [Suspect]
     Active Substance: UNSPECIFIED INGREDIENT
     Route: 041
     Dates: start: 20200303, end: 20200303
  17. DETENSIEL [Concomitant]
     Active Substance: BISOPROLOL FUMARATE
     Dates: start: 201901
  18. NEURONTIN [Concomitant]
     Active Substance: GABAPENTIN
     Dates: start: 201901, end: 20200302
  19. KAYEXALATE [Concomitant]
     Active Substance: SODIUM POLYSTYRENE SULFONATE
     Dates: start: 20200212, end: 20200622

REACTIONS (3)
  - Malignant neoplasm progression [Fatal]
  - Pulmonary embolism [Not Recovered/Not Resolved]
  - Haemoperitoneum [Not Recovered/Not Resolved]

NARRATIVE: CASE EVENT DATE: 20200312
